FAERS Safety Report 7599269-4 (Version None)
Quarter: 2011Q3

REPORT INFORMATION
  Report Type: 
  Country: None (occurrence: None)
  Receive Date: 20110711
  Receipt Date: 20081001
  Transmission Date: 20111222
  Serious: Yes (Death, Other)
  Sender: FDA-Public Use
  Company Number: US-BAYER-201038750NA

PATIENT
  Age: 68 Year
  Sex: Female
  Weight: 85 kg

DRUGS (18)
  1. CIPROFLOXACIN [Concomitant]
     Dosage: 500 MG, BID
     Route: 048
  2. HEPARIN [Concomitant]
     Dosage: 26
     Route: 042
     Dates: start: 20070214
  3. PROTAMINE SULFATE [Concomitant]
     Dosage: 50 MG, UNK
     Route: 042
  4. FENTANYL [Concomitant]
     Dosage: 4 ML, UNK
     Route: 042
     Dates: start: 20070214
  5. METFORMIN HCL [Concomitant]
     Dosage: 500 MG, LONG TERM
     Route: 048
  6. INSULIN [Concomitant]
     Dosage: 4
     Route: 042
     Dates: start: 20070214
  7. TRASYLOL [Suspect]
     Indication: PRODUCT USED FOR UNKNOWN INDICATION
     Dosage: 100 ML, LODAING DOSE AND UNKNOWN AMOUNT OF TEST DOSE
     Route: 042
     Dates: start: 20070214, end: 20070214
  8. FUROSEMIDE [Concomitant]
     Dosage: 40 MG, BID
     Route: 048
  9. ALTACE [Concomitant]
     Dosage: 2.5 MG, UNK
     Route: 048
  10. ACETYLSALICYLIC ACID SRT [Concomitant]
     Route: 048
  11. VERSED [Concomitant]
     Dosage: 4 MG, UNK
     Route: 042
     Dates: start: 20070214
  12. PLASMA [Concomitant]
     Dosage: 1 U, UNK
     Route: 042
     Dates: start: 20070214
  13. GLYBURIDE [Concomitant]
     Dosage: 2.5 MG, LONG TERM
     Route: 048
  14. PAVULON [Concomitant]
     Dosage: 15
     Route: 042
     Dates: start: 20070214
  15. GLUCOVANCE [Concomitant]
     Dosage: 1000 MG, BID
     Route: 048
  16. PLATELETS [Concomitant]
     Dosage: 1 U, UNK
     Route: 042
     Dates: start: 20070214
  17. RED BLOOD CELLS [Concomitant]
     Dosage: 1 U, UNK
     Route: 042
     Dates: start: 20070214
  18. TRASYLOL [Suspect]
     Indication: CORONARY ARTERY BYPASS

REACTIONS (9)
  - PAIN [None]
  - ANXIETY [None]
  - DEATH [None]
  - STRESS [None]
  - INJURY [None]
  - CARDIOPULMONARY FAILURE [None]
  - RENAL FAILURE [None]
  - EMOTIONAL DISTRESS [None]
  - RENAL IMPAIRMENT [None]
